FAERS Safety Report 21388894 (Version 2)
Quarter: 2024Q3

REPORT INFORMATION
  Report Type: Spontaneous
  Country: IN (occurrence: IN)
  Receive Date: 20220929
  Receipt Date: 20240930
  Transmission Date: 20241017
  Serious: Yes (Death, Other)
  Sender: PFIZER
  Company Number: IN-PFIZER INC-202200759704

PATIENT
  Age: 49 Year
  Sex: Female

DRUGS (2)
  1. PALBOCICLIB [Suspect]
     Active Substance: PALBOCICLIB
     Dosage: 125 MG, 1X/DAY
     Route: 048
     Dates: start: 20220101
  2. PALBOCICLIB [Suspect]
     Active Substance: PALBOCICLIB
     Dosage: 125 MG
     Route: 048
     Dates: start: 20220315

REACTIONS (4)
  - Death [Fatal]
  - Malaise [Unknown]
  - Weight decreased [Unknown]
  - Vomiting [Unknown]

NARRATIVE: CASE EVENT DATE: 20220816
